FAERS Safety Report 18921366 (Version 1)
Quarter: 2021Q1

REPORT INFORMATION
  Report Type: Spontaneous
  Country: US (occurrence: US)
  Receive Date: 20210219
  Receipt Date: 20210219
  Transmission Date: 20210420
  Serious: No
  Sender: FDA-Public Use
  Company Number: None

PATIENT
  Age: 81 Year
  Sex: Male

DRUGS (14)
  1. LABETALOL HCL [Concomitant]
     Active Substance: LABETALOL HYDROCHLORIDE
  2. ONDANSETRON HCL [Concomitant]
     Active Substance: ONDANSETRON HYDROCHLORIDE
  3. AMLODIPINE BESYLATE. [Concomitant]
     Active Substance: AMLODIPINE BESYLATE
  4. ATORVASTATIN CALCIUM. [Concomitant]
     Active Substance: ATORVASTATIN CALCIUM
  5. PACLITAXEL. [Concomitant]
     Active Substance: PACLITAXEL
  6. CAPECITABINE 150 MG TABLET [Suspect]
     Active Substance: CAPECITABINE
  7. CHLORTHALIDONE. [Concomitant]
     Active Substance: CHLORTHALIDONE
  8. FUROSEMIDE. [Concomitant]
     Active Substance: FUROSEMIDE
  9. PROCHLORPERAZINE MALEATE. [Concomitant]
     Active Substance: PROCHLORPERAZINE MALEATE
  10. ASPIRIN 81 [Concomitant]
     Active Substance: ASPIRIN
  11. CAPECITABINE 500MG [Suspect]
     Active Substance: CAPECITABINE
  12. IRBESARTAN. [Concomitant]
     Active Substance: IRBESARTAN
  13. ZUPLENZ [Concomitant]
     Active Substance: ONDANSETRON
  14. PANTOPRAZOLE SODIUM. [Concomitant]
     Active Substance: PANTOPRAZOLE SODIUM

REACTIONS (1)
  - Disease progression [None]

NARRATIVE: CASE EVENT DATE: 20210219
